FAERS Safety Report 5173284-2 (Version None)
Quarter: 2006Q4

REPORT INFORMATION
  Report Type: 
  Country: None (occurrence: None)
  Receive Date: 20061214
  Receipt Date: 20061206
  Transmission Date: 20070319
  Serious: Yes (Other)
  Sender: FDA-Public Use
  Company Number: US-AMGEN-US202704

PATIENT
  Sex: Female

DRUGS (1)
  1. ARANESP [Suspect]
     Indication: RENAL FAILURE CHRONIC
     Dates: start: 20060731, end: 20061113

REACTIONS (11)
  - ANGINA PECTORIS [None]
  - BLOOD CREATININE INCREASED [None]
  - BLOOD PRESSURE INCREASED [None]
  - COUGH [None]
  - HAEMATOCRIT DECREASED [None]
  - HAEMOGLOBIN DECREASED [None]
  - MALAISE [None]
  - PHARYNGOLARYNGEAL PAIN [None]
  - PHOTOSENSITIVITY REACTION [None]
  - SERUM SICKNESS [None]
  - STOMATITIS [None]
